FAERS Safety Report 5423192-4 (Version None)
Quarter: 2007Q3

REPORT INFORMATION
  Report Type: 
  Country: None (occurrence: None)
  Receive Date: 20070730
  Receipt Date: 20070413
  Transmission Date: 20080115
  Serious: Yes (Other)
  Sender: FDA-Public Use
  Company Number: 200616961BWH

PATIENT
  Age: 44 Year
  Sex: Female

DRUGS (3)
  1. AVELOX [Suspect]
     Indication: SINUSITIS
     Dosage: ORAL
     Route: 048
     Dates: start: 20061115, end: 20061101
  2. PREDNISONE [Concomitant]
  3. NASAL STEROID [Concomitant]

REACTIONS (9)
  - ARTHRALGIA [None]
  - CHILLS [None]
  - CONTUSION [None]
  - ERYTHEMA [None]
  - FEELING ABNORMAL [None]
  - HEADACHE [None]
  - HYPERSENSITIVITY [None]
  - PYREXIA [None]
  - SKIN LESION [None]
